FAERS Safety Report 4496810-5 (Version None)
Quarter: 2004Q4

REPORT INFORMATION
  Report Type: 
  Country: None (occurrence: None)
  Receive Date: 20041109
  Receipt Date: 20041029
  Transmission Date: 20050328
  Serious: Yes (Hospitalization)
  Sender: FDA-Public Use
  Company Number: PHEH2004US11706

PATIENT
  Age: 67 Year
  Sex: Female

DRUGS (2)
  1. FEMARA [Suspect]
     Indication: BREAST CANCER
     Dosage: 2.5 MG, QD
     Route: 048
     Dates: start: 20040301
  2. EFFEXOR [Concomitant]

REACTIONS (8)
  - ANGIONEUROTIC OEDEMA [None]
  - ENDODONTIC PROCEDURE [None]
  - FACE OEDEMA [None]
  - GINGIVAL SWELLING [None]
  - ODYNOPHAGIA [None]
  - TONGUE OEDEMA [None]
  - TOOTH ABSCESS [None]
  - TOOTH EXTRACTION [None]
